FAERS Safety Report 8113478-7 (Version None)
Quarter: 2012Q1

REPORT INFORMATION
  Report Type: 
  Country: None (occurrence: None)
  Receive Date: 20120131
  Receipt Date: 20120118
  Transmission Date: 20120608
  Serious: Yes (Death, Life-Threatening)
  Sender: FDA-Public Use
  Company Number: GB-007102

PATIENT
  Age: 11 Year
  Sex: Male

DRUGS (1)
  1. ZOMACTON (SOMATROPIN) POWDER AND SOLVENT FOR SOLUTION FOR INJECTION 1 [Suspect]
     Indication: GROWTH HORMONE DEFICIENCY
     Dosage: 1 MG
     Route: 058
     Dates: start: 20100504, end: 20111201

REACTIONS (1)
  - MEDULLOBLASTOMA RECURRENT [None]
